FAERS Safety Report 16292114 (Version 3)
Quarter: 2022Q2

REPORT INFORMATION
  Report Type: Spontaneous
  Country: US (occurrence: None)
  Receive Date: 20190509
  Receipt Date: 20220407
  Transmission Date: 20220721
  Serious: Yes (Other)
  Sender: FDA-Public Use
  Company Number: 2019SE62812

PATIENT
  Age: 22268 Day
  Sex: Female
  Weight: 68.5 kg

DRUGS (38)
  1. PRILOSEC [Suspect]
     Active Substance: OMEPRAZOLE MAGNESIUM
     Indication: Gastrooesophageal reflux disease
     Route: 048
     Dates: start: 2004
  2. PRILOSEC OTC [Suspect]
     Active Substance: OMEPRAZOLE MAGNESIUM
     Indication: Gastrooesophageal reflux disease
     Route: 048
     Dates: start: 2003
  3. PROTONIX [Suspect]
     Active Substance: PANTOPRAZOLE SODIUM
     Indication: Gastrooesophageal reflux disease
     Route: 065
  4. CYCLOBENZAPRINE [Concomitant]
     Active Substance: CYCLOBENZAPRINE
  5. AMITRIPTYLINE [Concomitant]
     Active Substance: AMITRIPTYLINE
  6. LACTOBACILLUS ACIDOPHILUS\LACTOBACILLUS DELBRUECKII SUBSP. BULGARICUS [Concomitant]
     Active Substance: LACTOBACILLUS ACIDOPHILUS\LACTOBACILLUS DELBRUECKII SUBSP. BULGARICUS
  7. SUCRALFATE [Concomitant]
     Active Substance: SUCRALFATE
  8. ONDANSETRON [Concomitant]
     Active Substance: ONDANSETRON
  9. MELOXICAM [Concomitant]
     Active Substance: MELOXICAM
  10. GABAPENTIN [Concomitant]
     Active Substance: GABAPENTIN
  11. MONTELUKAST [Concomitant]
     Active Substance: MONTELUKAST SODIUM
  12. FLUTICASONE [Concomitant]
     Active Substance: FLUTICASONE
  13. SERTRALINE [Concomitant]
     Active Substance: SERTRALINE HYDROCHLORIDE
  14. BUDESONIDE [Concomitant]
     Active Substance: BUDESONIDE
  15. CLOPIDOGREL [Concomitant]
     Active Substance: CLOPIDOGREL BISULFATE
  16. BACLOFEN [Concomitant]
     Active Substance: BACLOFEN
  17. ZOLPIDEM [Concomitant]
     Active Substance: ZOLPIDEM TARTRATE
  18. LYRICA [Concomitant]
     Active Substance: PREGABALIN
  19. ATORVASTATIN [Concomitant]
     Active Substance: ATORVASTATIN
  20. FLUOXETINE [Concomitant]
     Active Substance: FLUOXETINE HYDROCHLORIDE
  21. TRAVATAN [Concomitant]
     Active Substance: TRAVOPROST
  22. NITROSTAT [Concomitant]
     Active Substance: NITROGLYCERIN
  23. LEVOTHYROXINE [Concomitant]
     Active Substance: LEVOTHYROXINE
  24. TAMSULOSIN [Concomitant]
     Active Substance: TAMSULOSIN
  25. TEMAZEPAM [Concomitant]
     Active Substance: TEMAZEPAM
  26. RANEXA [Concomitant]
     Active Substance: RANOLAZINE
  27. HYOSCYAMINE [Concomitant]
     Active Substance: HYOSCYAMINE
  28. CYTOMEL [Concomitant]
     Active Substance: LIOTHYRONINE SODIUM
  29. HYDROCODONE [Concomitant]
     Active Substance: HYDROCODONE
  30. NITROGLYCERIN [Concomitant]
     Active Substance: NITROGLYCERIN
  31. ZALEPLON [Concomitant]
     Active Substance: ZALEPLON
  32. HYDROCORTISONE [Concomitant]
     Active Substance: HYDROCORTISONE
  33. PAROXETINE [Concomitant]
     Active Substance: PAROXETINE
  34. RAMIPRIL [Concomitant]
     Active Substance: RAMIPRIL
  35. PHENOBARBITAL [Concomitant]
     Active Substance: PHENOBARBITAL
  36. TRIAMCINOLONE [Concomitant]
     Active Substance: TRIAMCINOLONE
  37. CLOBETASOL [Concomitant]
     Active Substance: CLOBETASOL
  38. METHIMAZOLE [Concomitant]
     Active Substance: METHIMAZOLE

REACTIONS (3)
  - Acute kidney injury [Not Recovered/Not Resolved]
  - Renal failure [Unknown]
  - Tubulointerstitial nephritis [Unknown]

NARRATIVE: CASE EVENT DATE: 20161101
